FAERS Safety Report 13728563 (Version 1)
Quarter: 2017Q3

REPORT INFORMATION
  Report Type: Report from Study
  Country: None (occurrence: GB)
  Receive Date: 20170707
  Receipt Date: 20170707
  Transmission Date: 20171127
  Serious: Yes (Hospitalization)
  Sender: FDA-Public Use
  Company Number: GB-ABBVIE-17K-167-1985626-00

PATIENT
  Sex: Female

DRUGS (1)
  1. HUMIRA [Suspect]
     Active Substance: ADALIMUMAB
     Indication: PSORIATIC ARTHROPATHY
     Route: 058
     Dates: end: 20170504

REACTIONS (7)
  - Mouth ulceration [Unknown]
  - Pharyngeal ulceration [Unknown]
  - Herpes virus infection [Unknown]
  - Mouth swelling [Unknown]
  - Skin ulcer [Unknown]
  - Pharyngeal oedema [Unknown]
  - Peripheral swelling [Unknown]
